FAERS Safety Report 19533568 (Version 5)
Quarter: 2021Q4

REPORT INFORMATION
  Report Type: Report from Study
  Country: US (occurrence: US)
  Receive Date: 20210713
  Receipt Date: 20211208
  Transmission Date: 20220304
  Serious: Yes (Hospitalization)
  Sender: FDA-Public Use
  Company Number: US-TAKEDA-2021TUS030985

PATIENT
  Sex: Female

DRUGS (1)
  1. PONATINIB [Suspect]
     Active Substance: PONATINIB
     Indication: Leukaemia
     Dosage: 15 MILLIGRAM, BID
     Route: 065

REACTIONS (5)
  - Influenza [Unknown]
  - Somnolence [Unknown]
  - Malaise [Unknown]
  - Off label use [Not Recovered/Not Resolved]
  - Product dose omission issue [Unknown]
